FAERS Safety Report 6148874-0 (Version None)
Quarter: 2009Q2

REPORT INFORMATION
  Report Type: 
  Country: None (occurrence: None)
  Receive Date: 20090407
  Receipt Date: 20090326
  Transmission Date: 20091009
  Serious: Yes (Hospitalization)
  Sender: FDA-Public Use
  Company Number: CERZ-1000579

PATIENT
  Age: 12 Year
  Sex: Female
  Weight: 50 kg

DRUGS (1)
  1. CEREZYME [Suspect]
     Indication: GAUCHER'S DISEASE
     Dosage: 3000 I, Q2WE, INTRAVENOUS
     Route: 042
     Dates: start: 19981201

REACTIONS (4)
  - BACTERIAL INFECTION [None]
  - CATHETER RELATED INFECTION [None]
  - DRUG INEFFECTIVE [None]
  - SEPSIS [None]
